FAERS Safety Report 9296269 (Version 1)
Quarter: 2013Q2

REPORT INFORMATION
  Report Type: Spontaneous
  Country: GB (occurrence: GB)
  Receive Date: 20130517
  Receipt Date: 20130517
  Transmission Date: 20140414
  Serious: Yes (Hospitalization, Other)
  Sender: FDA-Public Use
  Company Number: GB-ELI_LILLY_AND_COMPANY-GB201305004080

PATIENT
  Sex: Male

DRUGS (5)
  1. EFIENT [Suspect]
     Dosage: 10 MG, QD
     Route: 048
  2. ASPIRIN [Concomitant]
  3. ATORVASTATIN [Concomitant]
  4. BISOPROLOL [Concomitant]
  5. RAMIPRIL [Concomitant]

REACTIONS (2)
  - Dysphagia [Not Recovered/Not Resolved]
  - Wrong technique in drug usage process [Unknown]
